FAERS Safety Report 11177711 (Version 1)
Quarter: 2015Q2

REPORT INFORMATION
  Report Type: Spontaneous
  Country: US (occurrence: None)
  Receive Date: 20150608
  Receipt Date: 20150608
  Transmission Date: 20150821
  Serious: No
  Sender: FDA-Public Use
  Company Number: None

PATIENT
  Age: 28 Year
  Sex: Female
  Weight: 65.77 kg

DRUGS (2)
  1. CITALOPRAM [Suspect]
     Active Substance: CITALOPRAM HYDROBROMIDE
     Indication: DEPRESSION
     Route: 048
     Dates: start: 20150528, end: 20150604
  2. PROZAC [Concomitant]
     Active Substance: FLUOXETINE HYDROCHLORIDE

REACTIONS (8)
  - Vomiting [None]
  - Nausea [None]
  - Sluggishness [None]
  - Feeling abnormal [None]
  - Feeling drunk [None]
  - Malaise [None]
  - Vision blurred [None]
  - Impaired work ability [None]

NARRATIVE: CASE EVENT DATE: 20150528
